FAERS Safety Report 12477019 (Version 2)
Quarter: 2016Q2

REPORT INFORMATION
  Report Type: Report from Study
  Country: CA (occurrence: CA)
  Receive Date: 20160617
  Receipt Date: 20160622
  Transmission Date: 20160815
  Serious: Yes (Other)
  Sender: FDA-Public Use
  Company Number: CA-009507513-1606CAN004869

PATIENT
  Sex: Male

DRUGS (1)
  1. ZOLINZA [Suspect]
     Active Substance: VORINOSTAT
     Indication: MYCOSIS FUNGOIDES
     Dosage: 400 MG, QD X 30 DAYS
     Route: 048
     Dates: start: 201602

REACTIONS (1)
  - Stem cell transplant [Unknown]
